FAERS Safety Report 5518834-9 (Version None)
Quarter: 2007Q4

REPORT INFORMATION
  Report Type: 
  Country: None (occurrence: None)
  Receive Date: 20071113
  Receipt Date: 20071107
  Transmission Date: 20080405
  Serious: Yes (Hospitalization)
  Sender: FDA-Public Use
  Company Number: 2006-07-1710

PATIENT
  Age: 69 Year
  Sex: Female
  Weight: 51 kg

DRUGS (6)
  1. PEG-INTRON [Suspect]
     Dosage: 80 MCG;QW;SC
     Route: 058
     Dates: start: 20050902, end: 20051007
  2. REBETOL [Suspect]
     Dosage: 600 MG;QD;PO
     Route: 048
     Dates: start: 20050902, end: 20051007
  3. URSO 250 [Concomitant]
  4. URALYT [Concomitant]
  5. FLOMOX [Concomitant]
  6. REBAMIPIDE [Concomitant]

REACTIONS (3)
  - ALPHA HAEMOLYTIC STREPTOCOCCAL INFECTION [None]
  - INFECTIVE SPONDYLITIS [None]
  - MUSCLE ABSCESS [None]
